FAERS Safety Report 22188216 (Version 1)
Quarter: 2023Q2

REPORT INFORMATION
  Report Type: Spontaneous
  Country: ES (occurrence: ES)
  Receive Date: 20230408
  Receipt Date: 20230408
  Transmission Date: 20230722
  Serious: Yes (Other)
  Sender: FDA-Public Use
  Company Number: None

PATIENT
  Age: 82 Year
  Sex: Male

DRUGS (1)
  1. SIMVASTATIN [Suspect]
     Active Substance: SIMVASTATIN
     Indication: Dyslipidaemia
     Dosage: SIMVASTATINA (1023A)
     Route: 065
     Dates: start: 20220622, end: 20230307

REACTIONS (1)
  - Transient global amnesia [Recovered/Resolved]

NARRATIVE: CASE EVENT DATE: 20230306
